FAERS Safety Report 11597684 (Version 1)
Quarter: 2015Q3

REPORT INFORMATION
  Report Type: Spontaneous
  Country: US (occurrence: US)
  Receive Date: 20150916
  Receipt Date: 20150916
  Transmission Date: 20151125
  Serious: No
  Sender: FDA-Public Use
  Company Number: US-ELI_LILLY_AND_COMPANY-US200801003533

PATIENT
  Sex: Female
  Weight: 61.68 kg

DRUGS (2)
  1. VIACTIV /00751501/ [Concomitant]
  2. FORTEO [Suspect]
     Active Substance: TERIPARATIDE
     Indication: OSTEOPOROSIS
     Dosage: UNK, UNK
     Dates: start: 2006

REACTIONS (6)
  - Compression fracture [Unknown]
  - Oestrogen deficiency [Unknown]
  - Hand fracture [Unknown]
  - Body height decreased [Unknown]
  - Intervertebral disc degeneration [Unknown]
  - Osteopenia [Unknown]
